FAERS Safety Report 5319015-4 (Version None)
Quarter: 2007Q2

REPORT INFORMATION
  Report Type: 
  Country: None (occurrence: None)
  Receive Date: 20070503
  Receipt Date: 20070503
  Transmission Date: 20071010
  Serious: Yes (Other)
  Sender: FDA-Public Use
  Company Number: None

PATIENT
  Age: 28 Year
  Sex: Female
  Weight: 52.1637 kg

DRUGS (2)
  1. ZOLOFT [Suspect]
     Indication: POST-TRAUMATIC STRESS DISORDER
     Dosage: 100MGS   1 PER DAY   PO
     Route: 048
     Dates: start: 20040831, end: 20070501
  2. ZOLOFT [Suspect]
     Indication: POSTPARTUM DEPRESSION
     Dosage: 100MGS   1 PER DAY   PO
     Route: 048
     Dates: start: 20040831, end: 20070501

REACTIONS (17)
  - AGGRESSION [None]
  - ANXIETY [None]
  - BALANCE DISORDER [None]
  - CONFUSIONAL STATE [None]
  - COORDINATION ABNORMAL [None]
  - DIARRHOEA [None]
  - DRUG DEPENDENCE [None]
  - DRUG DOSE OMISSION [None]
  - DRUG WITHDRAWAL SYNDROME [None]
  - ECONOMIC PROBLEM [None]
  - FEELING ABNORMAL [None]
  - HYPOKINESIA [None]
  - INFLUENZA LIKE ILLNESS [None]
  - LETHARGY [None]
  - PARAESTHESIA [None]
  - STOMACH DISCOMFORT [None]
  - VERTIGO [None]
